FAERS Safety Report 9684550 (Version 2)
Quarter: 2013Q4

REPORT INFORMATION
  Report Type: Spontaneous
  Country: DE (occurrence: DE)
  Receive Date: 20131112
  Receipt Date: 20131213
  Transmission Date: 20140711
  Serious: Yes (Death, Other)
  Sender: FDA-Public Use
  Company Number: DE-GILEAD-2013-0087351

PATIENT
  Age: 80 Year
  Sex: Male

DRUGS (4)
  1. AMBRISENTAN [Suspect]
     Indication: PULMONARY ARTERIAL HYPERTENSION
     Dosage: 5 MG, QD
     Route: 048
  2. AMBRISENTAN [Suspect]
     Dosage: 2.5 MG, QD
     Route: 048
  3. ADCIRCA [Concomitant]
     Indication: PULMONARY ARTERIAL HYPERTENSION
     Route: 048
  4. ADCIRCA [Concomitant]
     Route: 048

REACTIONS (1)
  - Death [Fatal]
